APPROVED DRUG PRODUCT: SUPREP BOWEL PREP KIT
Active Ingredient: MAGNESIUM SULFATE; POTASSIUM SULFATE; SODIUM SULFATE
Strength: 1.6GM/BOT;3.13GM/BOT;17.5GM/BOT
Dosage Form/Route: SOLUTION;ORAL
Application: N022372 | Product #001 | TE Code: AA
Applicant: AZURITY PHARMACEUTICALS INC
Approved: Aug 5, 2010 | RLD: Yes | RS: Yes | Type: RX

EXCLUSIVITY:
Code: ODE-315 | Date: Aug 5, 2027